FAERS Safety Report 4286820-5 (Version None)
Quarter: 2004Q1

REPORT INFORMATION
  Report Type: 
  Country: None (occurrence: None)
  Receive Date: 20040204
  Receipt Date: 20040128
  Transmission Date: 20041129
  Serious: Yes (Other)
  Sender: FDA-Public Use
  Company Number: US-JNJFOC-20031005020

PATIENT
  Age: 55 Year
  Sex: Male

DRUGS (10)
  1. DURAGESIC [Suspect]
     Indication: PAIN
     Dosage: 50 UG/HR, TRANSDERMAL;  75 UG/HR, 1 IN 72 HOUR, TRANSDERMAL
     Route: 062
     Dates: end: 20030801
  2. DURAGESIC [Suspect]
     Indication: PAIN
     Dosage: 50 UG/HR, TRANSDERMAL;  75 UG/HR, 1 IN 72 HOUR, TRANSDERMAL
     Route: 062
     Dates: start: 20030801, end: 20031211
  3. LORTAB (VICODIN) TABLETS [Concomitant]
  4. ZOCOR [Concomitant]
  5. DIOVAN [Concomitant]
  6. PREVACID (LANSOPRAZOLE) TABLETS [Concomitant]
  7. AMBIEN [Concomitant]
  8. ZITHROMAX (AZITHROMYCIN) TABLETS [Concomitant]
  9. ATIVAN [Concomitant]
  10. ESCITALOPRAM (CITALOPRAM) [Concomitant]

REACTIONS (2)
  - DEAFNESS UNILATERAL [None]
  - VIRAL INFECTION [None]
